FAERS Safety Report 7517872-4 (Version None)
Quarter: 2011Q2

REPORT INFORMATION
  Report Type: 
  Country: None (occurrence: None)
  Receive Date: 20110602
  Receipt Date: 20110201
  Transmission Date: 20111010
  Serious: Yes (Hospitalization, Other)
  Sender: FDA-Public Use
  Company Number: US-BAYER-201033557NA

PATIENT
  Age: 29 Year
  Sex: Female
  Weight: 68.027 kg

DRUGS (3)
  1. OVCON-35 [Concomitant]
  2. LOESTRIN FE 1/20 [Concomitant]
  3. YASMIN [Suspect]
     Indication: PROPHYLAXIS
     Dosage: UNK
     Dates: start: 19990101, end: 20000101

REACTIONS (2)
  - THROMBOSIS [None]
  - PULMONARY EMBOLISM [None]
